FAERS Safety Report 13854375 (Version 3)
Quarter: 2017Q3

REPORT INFORMATION
  Report Type: Report from Study
  Country: None (occurrence: US)
  Receive Date: 20170809
  Receipt Date: 20170901
  Transmission Date: 20171127
  Serious: Yes (Hospitalization)
  Sender: FDA-Public Use
  Company Number: US-ABBVIE-17P-163-2058232-00

PATIENT
  Age: 65 Year
  Sex: Female
  Weight: 54.4 kg

DRUGS (45)
  1. LANSOPRAZOLE. [Concomitant]
     Active Substance: LANSOPRAZOLE
     Indication: GASTROOESOPHAGEAL REFLUX DISEASE
     Route: 048
     Dates: start: 20161108
  2. FLUOCINOLONE SCALP OIL [Concomitant]
     Indication: RASH
     Route: 061
     Dates: start: 20170105
  3. ASPIRIN. [Concomitant]
     Active Substance: ASPIRIN
     Indication: CORONARY ARTERY DISEASE
     Route: 048
     Dates: start: 20170619, end: 20170628
  4. VENETOCLAX. [Suspect]
     Active Substance: VENETOCLAX
     Indication: CHRONIC LYMPHOCYTIC LEUKAEMIA
     Route: 048
     Dates: start: 20160919, end: 20160919
  5. VENETOCLAX. [Suspect]
     Active Substance: VENETOCLAX
     Route: 048
     Dates: start: 20161003, end: 20170530
  6. TYLENOL [Concomitant]
     Active Substance: ACETAMINOPHEN
     Indication: PAIN
     Route: 048
     Dates: start: 20160918
  7. DIPHENHYDRAMINE. [Concomitant]
     Active Substance: DIPHENHYDRAMINE
     Indication: PRURITUS
     Route: 048
     Dates: start: 20161221
  8. DIPHENHYDRAMINE. [Concomitant]
     Active Substance: DIPHENHYDRAMINE
     Indication: NASAL CONGESTION
     Route: 048
     Dates: start: 20170619, end: 20170619
  9. TRIAMCINOLONE [Concomitant]
     Active Substance: TRIAMCINOLONE
     Indication: CELLULITIS
     Route: 061
     Dates: start: 20170626, end: 20170628
  10. MUPIROCIN. [Concomitant]
     Active Substance: MUPIROCIN
     Indication: RASH
     Route: 061
     Dates: start: 20170105
  11. LEVOTHYROXINE. [Concomitant]
     Active Substance: LEVOTHYROXINE
     Indication: HYPOTHYROIDISM
     Route: 048
     Dates: start: 20151223
  12. DIPHENHYDRAMINE. [Concomitant]
     Active Substance: DIPHENHYDRAMINE
     Indication: NUCLEAR MAGNETIC RESONANCE IMAGING
  13. FUROSEMIDE TAB [Concomitant]
     Indication: OEDEMA
     Route: 048
     Dates: start: 20160928
  14. PREDNISONE. [Concomitant]
     Active Substance: PREDNISONE
     Indication: CELLULITIS
     Route: 048
     Dates: start: 20170620, end: 20170621
  15. PREDNISONE. [Concomitant]
     Active Substance: PREDNISONE
     Indication: CONTRAST MEDIA ALLERGY
  16. POLYETHYLENE GLYCOL 400 0.25% SOLN [Concomitant]
     Indication: DRY EYE
     Route: 047
     Dates: start: 20160919
  17. CARAFATE [Concomitant]
     Active Substance: SUCRALFATE
     Indication: GASTROOESOPHAGEAL REFLUX DISEASE
     Dosage: 1G/10 ML SUSPENSION
     Route: 048
     Dates: start: 20161108
  18. TRIAMCINOLONE [Concomitant]
     Active Substance: TRIAMCINOLONE
     Indication: PRURITUS
  19. ONDANSETRON [Concomitant]
     Active Substance: ONDANSETRON
     Indication: NAUSEA
     Route: 048
     Dates: start: 20170516
  20. MULTIVITAMIN [Concomitant]
     Active Substance: VITAMINS
     Indication: VITAMIN SUPPLEMENTATION
     Route: 048
     Dates: start: 20150417
  21. TYLENOL [Concomitant]
     Active Substance: ACETAMINOPHEN
     Indication: PYREXIA
  22. FUROSEMIDE TAB [Concomitant]
     Indication: FLUID OVERLOAD
  23. PREDNISONE. [Concomitant]
     Active Substance: PREDNISONE
     Indication: FLANK PAIN
     Route: 048
     Dates: start: 20160920, end: 20160920
  24. PREDNISONE. [Concomitant]
     Active Substance: PREDNISONE
     Indication: PREMEDICATION
     Route: 048
     Dates: start: 20170702
  25. HYDROCORTISONE. [Concomitant]
     Active Substance: HYDROCORTISONE
     Indication: RASH
     Route: 061
     Dates: start: 20161205
  26. NEO-POLY-DEX EYE DROP [Concomitant]
     Indication: DRUG HYPERSENSITIVITY
     Route: 047
     Dates: start: 20170106
  27. FOLIC ACID. [Concomitant]
     Active Substance: FOLIC ACID
     Indication: VITAMIN SUPPLEMENTATION
     Route: 048
     Dates: start: 20170619, end: 20170628
  28. PREDNISONE. [Concomitant]
     Active Substance: PREDNISONE
     Indication: NUCLEAR MAGNETIC RESONANCE IMAGING
  29. CRITIC-AID CLEAR AF [Concomitant]
     Indication: RASH
     Route: 061
     Dates: start: 20160918
  30. VENETOCLAX. [Suspect]
     Active Substance: VENETOCLAX
     Route: 048
     Dates: start: 20160926, end: 20161002
  31. VENETOCLAX. [Suspect]
     Active Substance: VENETOCLAX
     Route: 048
     Dates: start: 20170531
  32. CALCIUM-MAGNESIUM-VITAMIN D 600-40-500 TB24 [Concomitant]
     Indication: VITAMIN SUPPLEMENTATION
     Route: 048
     Dates: start: 20160919
  33. VITAMIN B COMPLEX [Concomitant]
     Active Substance: CYANOCOBALAMIN\DEXPANTHENOL\NIACINAMIDE\PYRIDOXINE HYDROCHLORIDE\RIBOFLAVIN 5^-PHOSPHATE SODIUM\THIAMINE HYDROCHLORIDE\VITAMIN B COMPLEX
     Indication: VITAMIN SUPPLEMENTATION
     Route: 048
     Dates: start: 20160406
  34. VENELEX [Concomitant]
     Active Substance: BALSAM PERU\CASTOR OIL
     Indication: RASH
     Route: 061
     Dates: start: 20160928
  35. DIPHENHYDRAMINE. [Concomitant]
     Active Substance: DIPHENHYDRAMINE
     Indication: PREMEDICATION
     Route: 048
     Dates: start: 20170621, end: 20170621
  36. DIPHENHYDRAMINE. [Concomitant]
     Active Substance: DIPHENHYDRAMINE
     Indication: CONTRAST MEDIA ALLERGY
  37. ALCLOMETASONE DIPRO [Concomitant]
     Indication: RASH
     Route: 061
     Dates: start: 20170106
  38. VENETOCLAX. [Suspect]
     Active Substance: VENETOCLAX
     Route: 048
     Dates: start: 20160920, end: 20160921
  39. VENETOCLAX. [Suspect]
     Active Substance: VENETOCLAX
     Route: 048
     Dates: start: 20160922, end: 20160925
  40. CENTRUM SILVER TAB [Concomitant]
     Indication: VITAMIN SUPPLEMENTATION
     Route: 048
     Dates: start: 20160919
  41. FOLIC ACID. [Concomitant]
     Active Substance: FOLIC ACID
     Indication: ANAEMIA
     Route: 048
     Dates: start: 20151213
  42. PREDNISONE. [Concomitant]
     Active Substance: PREDNISONE
     Indication: SWELLING
     Route: 048
     Dates: start: 20170625, end: 20170701
  43. TRIAMCINOLONE [Concomitant]
     Active Substance: TRIAMCINOLONE
     Indication: RASH
     Route: 061
     Dates: start: 20170105
  44. KETOCONAZOLE. [Concomitant]
     Active Substance: KETOCONAZOLE
     Indication: RASH
     Route: 061
     Dates: start: 20170105
  45. ASPIRIN. [Concomitant]
     Active Substance: ASPIRIN
     Indication: PROPHYLAXIS
     Route: 048
     Dates: start: 20170629

REACTIONS (1)
  - Chest pain [Not Recovered/Not Resolved]

NARRATIVE: CASE EVENT DATE: 20170730
